FAERS Safety Report 10083313 (Version 2)
Quarter: 2014Q2

REPORT INFORMATION
  Report Type: Spontaneous
  Country: US (occurrence: US)
  Receive Date: 20140417
  Receipt Date: 20140417
  Transmission Date: 20141212
  Serious: Yes (Other)
  Sender: FDA-Public Use
  Company Number: US-AMGEN-USASP2014022392

PATIENT
  Age: 67 Year
  Sex: Female
  Weight: 123.81 kg

DRUGS (47)
  1. PROLIA [Suspect]
     Indication: PRODUCT USED FOR UNKNOWN INDICATION
     Dosage: 60 MG, Q6MO
     Route: 058
     Dates: start: 201307, end: 201309
  2. AVELOX                             /01278901/ [Concomitant]
     Dosage: UNK UNK, QD
     Dates: start: 20120103, end: 20120113
  3. AZITHROMYCIN [Concomitant]
     Dosage: 500 MG, QD
     Route: 048
     Dates: start: 20080211, end: 20080218
  4. ACIPHEX [Concomitant]
     Dosage: 20 MG, UNK
     Route: 048
     Dates: start: 20070810, end: 20071016
  5. ACTONEL [Concomitant]
     Dosage: 35 MG, QWK
     Route: 048
     Dates: start: 20061218, end: 20101216
  6. ALBUTEROL                          /00139501/ [Concomitant]
     Dosage: 90 MUG, 1-2 PUFFS, EVERY FOUR TO SIX HOURS
     Dates: start: 20061218, end: 20110819
  7. ALENDRONATE SODIUM [Concomitant]
     Dosage: 70 MG, QWK
     Route: 048
     Dates: start: 20110113, end: 20110809
  8. AMBIEN [Concomitant]
     Dosage: 10 MG, UNK
     Route: 048
     Dates: start: 20061218, end: 20100806
  9. AMOXICILLIN [Concomitant]
     Dosage: 500 MG, UNK
     Dates: start: 20130508, end: 20131007
  10. ASPIRIN [Concomitant]
     Dosage: 81 MG, QD
     Route: 048
     Dates: start: 20090827, end: 20100806
  11. ASTELIN                            /00085801/ [Concomitant]
     Dosage: 137 MUG, UNK
     Dates: start: 20061218, end: 2007
  12. ATORVASTATIN CALCIUM [Concomitant]
     Dosage: 10 MG, QD
     Route: 048
     Dates: start: 20120827, end: 20130903
  13. BENZONATATE [Concomitant]
     Dosage: 100 MG, TID
     Route: 048
     Dates: start: 20110106, end: 20110609
  14. BONIVA [Concomitant]
     Dosage: 150 MG, QMO
     Route: 048
     Dates: start: 20101216, end: 20110809
  15. CEPHALEXIN                         /00145501/ [Concomitant]
     Dosage: 500 MG, TID
     Route: 048
     Dates: start: 20130903, end: 20130926
  16. CLINDAMYCIN PHOSPHATE [Concomitant]
     Dosage: UNK UNK, BID
     Dates: start: 20101216, end: 20130903
  17. CRESTOR [Concomitant]
     Dosage: 10 MG, QD
     Dates: start: 20090220, end: 20120827
  18. CYCLOBENZAPRINE HCL [Concomitant]
     Indication: MYALGIA
     Dosage: 10 MG, AS NECESSARY
     Route: 048
     Dates: start: 20100519, end: 20100806
  19. DIAZEPAM [Concomitant]
     Indication: MUSCLE SPASMS
     Dosage: 5 MG, TID
     Route: 048
     Dates: start: 20061218, end: 20070917
  20. DIAZEPAM [Concomitant]
     Indication: ANXIETY
  21. DOXYCYCLINE HYCLATE [Concomitant]
     Dosage: 100 MG, Q12H, QD
     Route: 048
     Dates: start: 20130903, end: 20130926
  22. DURAGESIC                          /00070401/ [Concomitant]
     Dosage: 100 MUG, QH
     Dates: start: 20061218, end: 20070716
  23. ECONAZOLE NITRATE [Concomitant]
     Dosage: UNK
     Dates: start: 20091008, end: 20100806
  24. EFFEXOR [Concomitant]
     Dosage: 150 MG, QD
     Route: 048
     Dates: start: 20070917, end: 20071016
  25. ERYTHROMYCIN [Concomitant]
     Indication: EYE DISORDER
     Dosage: 5 MG, Q6H
     Dates: start: 20070103, end: 20071016
  26. FENTANYL [Concomitant]
     Indication: PAIN
     Dosage: 50 MUG, QH
     Dates: start: 20061218, end: 20121211
  27. GABAPENTIN [Concomitant]
     Dosage: 300 MG, TID, AS NEEDED
     Route: 048
     Dates: start: 20131003, end: 20131104
  28. GUAIFENESIN AC [Concomitant]
     Dosage: , 10 MG, Q4H AS NEEDED.
     Dates: start: 20070917, end: 20090211
  29. HUMALOG [Concomitant]
     Dosage: 100 UNIT, UNK
     Route: 058
     Dates: start: 20061218, end: 20100519
  30. HUMULIN [Concomitant]
     Dosage: 100 UNIT, UNK
     Dates: start: 20100519, end: 20110819
  31. IPRATROPIUM [Concomitant]
     Dosage: 3 MG/ML, Q4H
     Dates: start: 20090612, end: 20090924
  32. LANTUS [Concomitant]
     Dosage: 100 UNITS/ML, QD IN THE MORNING
     Route: 058
     Dates: start: 20061218, end: 20100519
  33. LEVOTHYROXINE SODIUM [Concomitant]
     Indication: THYROID DISORDER
     Dosage: 100 MUG, QD
     Route: 048
     Dates: start: 20091217, end: 20120814
  34. LIDODERM [Concomitant]
     Dosage: UNK
     Dates: start: 20061218, end: 20090924
  35. LYRICA [Concomitant]
     Dosage: 75 MG, BID
     Route: 048
     Dates: start: 20061218, end: 20070917
  36. METFORMIN HYDROCHLORIDE [Concomitant]
     Dosage: 1000 MG, BID
     Route: 048
     Dates: start: 20090921, end: 20110819
  37. NITROFURANTOIN MONOHYDRATE/MACROCRYSTALS [Concomitant]
     Dosage: 100 MG, UNK
     Route: 048
     Dates: start: 20110809, end: 20110819
  38. NYSTATIN AND TRIAMCINOLONE [Concomitant]
     Dosage: UNK UNK, TID
     Dates: start: 20110609, end: 20130903
  39. OXYCODONE AND ACETAMINOPHEN [Concomitant]
     Indication: PAIN
     Dosage: 5-325 MG AS NECESSARY
     Route: 048
     Dates: start: 20100430, end: 20110809
  40. PERINDOPRIL ERBUMINE [Concomitant]
     Indication: HYPERTENSION
     Dosage: 8 MG, UNK
     Route: 048
     Dates: start: 20061218, end: 20110819
  41. PRAVASTATIN SODIUM [Concomitant]
     Dosage: 40 MG, QD
     Route: 048
     Dates: start: 20090128, end: 20090220
  42. PREDNISONE [Concomitant]
     Dosage: 10 MG, UNK
     Route: 048
     Dates: start: 20070917, end: 20120814
  43. PROMETHAZINE HYDROCHLORIDE [Concomitant]
     Dosage: 25 MG, Q4H, AS NECESSARY
     Route: 048
     Dates: start: 20120229, end: 20120529
  44. PROVENTIL HFA                      /00139501/ [Concomitant]
     Dosage: 108 MUG,, EVERY FOUR TO SIX HOURS
     Dates: start: 20080919, end: 20090608
  45. SINGULAR [Concomitant]
     Dosage: UNK UNK, QD
     Dates: start: 20030903, end: 20121211
  46. SPIRIVA HANDIHALER [Concomitant]
     Dosage: 18 MUG, UNK
     Dates: start: 20120529, end: 20130903
  47. TERBINAFINE HYDROCHLORIDE [Concomitant]
     Dosage: 250 MG, QD
     Route: 048
     Dates: start: 20091008, end: 20100806

REACTIONS (4)
  - Cellulitis [Recovered/Resolved]
  - Pelvic fracture [Unknown]
  - Localised infection [Unknown]
  - Oedema peripheral [Recovered/Resolved]
